FAERS Safety Report 24616010 (Version 1)
Quarter: 2024Q4

REPORT INFORMATION
  Report Type: Report from Study
  Country: CA (occurrence: CA)
  Receive Date: 20241113
  Receipt Date: 20241113
  Transmission Date: 20250115
  Serious: Yes (Other)
  Sender: ABBVIE
  Company Number: CA-ABBVIE-5993595

PATIENT
  Age: 40 Year
  Sex: Female

DRUGS (2)
  1. RINVOQ [Suspect]
     Active Substance: UPADACITINIB
     Indication: Crohn^s disease
     Route: 048
     Dates: start: 20230630, end: 2024
  2. CEPHALEXIN [Suspect]
     Active Substance: CEPHALEXIN
     Indication: Tooth abscess
     Route: 065
     Dates: start: 20241031, end: 202411

REACTIONS (5)
  - Tooth abscess [Recovering/Resolving]
  - Nausea [Unknown]
  - Toothache [Unknown]
  - Crohn^s disease [Unknown]
  - Lymphadenopathy [Unknown]

NARRATIVE: CASE EVENT DATE: 20240101
